FAERS Safety Report 23152073 (Version 1)
Quarter: 2023Q4

REPORT INFORMATION
  Report Type: Report from Study
  Country: US (occurrence: US)
  Receive Date: 20231107
  Receipt Date: 20231107
  Transmission Date: 20240109
  Serious: Yes (Other)
  Sender: FDA-Public Use
  Company Number: US-ABBVIE-5378753

PATIENT
  Sex: Male
  Weight: 97 kg

DRUGS (1)
  1. HUMIRA [Suspect]
     Active Substance: ADALIMUMAB
     Indication: Psoriasis
     Route: 058
     Dates: start: 20150812

REACTIONS (8)
  - Knee arthroplasty [Not Recovered/Not Resolved]
  - Crepitations [Not Recovered/Not Resolved]
  - Eczema [Unknown]
  - Arthritis [Unknown]
  - Exostosis [Not Recovered/Not Resolved]
  - Peripheral swelling [Unknown]
  - Post procedural complication [Not Recovered/Not Resolved]
  - Pain in extremity [Unknown]

NARRATIVE: CASE EVENT DATE: 20230101
